FAERS Safety Report 9505384 (Version 1)
Quarter: 2013Q1

REPORT INFORMATION
  Report Type: Spontaneous
  Country: US (occurrence: None)
  Receive Date: 20130220
  Receipt Date: 20130220
  Transmission Date: 20140127
  Serious: No
  Sender: FDA-Public Use
  Company Number: 1000040531

PATIENT
  Age: 51 Year
  Sex: Female

DRUGS (7)
  1. VIIBYRD (VILAZODONE HYDROCHLORIDE) [Suspect]
     Indication: DEPRESSION
     Dosage: 10 MG (10 MG, 1 IN 1 D), ORAL
     Route: 048
     Dates: start: 201211, end: 201211
  2. VIIBYRD (VILAZODONE HYDROCHLORIDE) [Suspect]
     Indication: DEPRESSION
     Dosage: 20 MG (20 MG, 1 IN 1 D), ORAL
     Route: 048
     Dates: start: 201211, end: 20121113
  3. GABAPENTIN (GABAPENTIN) (GABAPENTIN) [Concomitant]
  4. LORTAB (HYDROCODONE BITARTRATE, ACETAMINOOPHEN) (HYDROCODONE BITARTRATE, ACETAMINOPHEN) [Concomitant]
  5. MELOXICAM (MELOXICAM) (MELOXICAM) [Concomitant]
  6. ONE A DAY WOMEN^S MULTIVITAMIN (ONE A DAY WOMEN^S MULTIVITAMIN) (ONE A DAY WOMEN^S MULTIVITAMIN) [Concomitant]
  7. VITAMIN B COMPLEX (VITAMIN B COMPLEX) (VITAMIN B COMPLEX) [Concomitant]

REACTIONS (1)
  - Urticaria [None]
